FAERS Safety Report 6912150-6 (Version None)
Quarter: 2010Q3

REPORT INFORMATION
  Report Type: 
  Country: None (occurrence: None)
  Receive Date: 20100806
  Receipt Date: 20080107
  Transmission Date: 20110219
  Serious: Yes (Other)
  Sender: FDA-Public Use
  Company Number: US-PFIZER INC-2008001892

PATIENT
  Sex: Female
  Weight: 39 kg

DRUGS (3)
  1. VFEND [Suspect]
     Indication: ASPERGILLOSIS
     Dates: start: 20080101
  2. ISONIAZID [Concomitant]
  3. PYRAZINAMIDE [Concomitant]

REACTIONS (1)
  - JAUNDICE [None]
